FAERS Safety Report 9165027 (Version 1)
Quarter: 2013Q1

REPORT INFORMATION
  Report Type: Spontaneous
  Country: US (occurrence: US)
  Receive Date: 20130315
  Receipt Date: 20130315
  Transmission Date: 20140127
  Serious: Yes (Hospitalization)
  Sender: FDA-Public Use
  Company Number: US-BAYER-2013-030819

PATIENT
  Age: 27 Year
  Sex: Female
  Weight: 49 kg

DRUGS (8)
  1. YASMIN [Suspect]
  2. OCELLA [Suspect]
  3. ZARAH [Suspect]
  4. CLOBETASOL [Concomitant]
     Dosage: UNK
     Dates: start: 20111218
  5. OMEPRAZOLE [Concomitant]
  6. GLUCOSAMINE [GLUCOSAMINE] [Concomitant]
  7. TAGAMET [Concomitant]
     Dosage: UNK
     Dates: start: 20071022, end: 20120112
  8. ZOLOFT [Concomitant]
     Dosage: UNK
     Dates: start: 20050915, end: 20120210

REACTIONS (1)
  - Pulmonary embolism [None]
